FAERS Safety Report 8654562 (Version 7)
Quarter: 2014Q1

REPORT INFORMATION
  Report Type: Report from Study
  Country: FR (occurrence: FR)
  Receive Date: 20120709
  Receipt Date: 20140110
  Transmission Date: 20141002
  Serious: Yes (Hospitalization, Other)
  Sender: FDA-Public Use
  Company Number: FR-VERTEX PHARMACEUTICALS INC.-000000000000000124

PATIENT
  Age: 59 Year
  Sex: Female
  Weight: 58 kg

DRUGS (30)
  1. VX-950 (TELAPREVIR) [Suspect]
     Indication: HEPATITIS C
     Dosage: DOSAGE FORM: TABLET
     Route: 048
     Dates: start: 20110914, end: 20111019
  2. VX-950 (TELAPREVIR) [Suspect]
     Dosage: DOSAGE FORM: TABLET
     Route: 048
     Dates: start: 20111023, end: 20111208
  3. COPEGUS [Suspect]
     Indication: CHRONIC HEPATITIS C
     Dosage: DOSAGE FORM: TABLET
     Route: 048
     Dates: start: 20110914, end: 20111019
  4. COPEGUS [Suspect]
     Dosage: DOSAGE FORM: TABLET
     Route: 048
     Dates: start: 20111023, end: 20111208
  5. COPEGUS [Suspect]
     Dosage: DOSAGE FORM: TABLET, 3 TABLETS
     Route: 048
     Dates: start: 20111124
  6. PEGASYS [Suspect]
     Indication: CHRONIC HEPATITIS C
     Dosage: DOSAGE FORM: UNKNOWN
     Route: 058
     Dates: start: 20110914, end: 20111019
  7. PEGASYS [Suspect]
     Dosage: DOSAGE FORM: UNKNOWN
     Route: 058
     Dates: start: 20111023, end: 20111208
  8. LASILIX [Suspect]
     Indication: DIURETIC THERAPY
     Dosage: UNK
     Route: 065
     Dates: end: 201111
  9. LASILIX [Suspect]
     Dosage: 40 MG, QD
     Route: 065
  10. SPIRONOLACTONE [Suspect]
     Indication: PRODUCT USED FOR UNKNOWN INDICATION
     Route: 065
     Dates: end: 201111
  11. PRAVASTATIN [Suspect]
     Indication: PRODUCT USED FOR UNKNOWN INDICATION
     Dosage: 20 MG, BID
     Dates: end: 20111211
  12. PROZAC [Suspect]
     Indication: ANTIDEPRESSANT THERAPY
     Dosage: DOSAGE FORM: TABLET
     Dates: end: 20111211
  13. PROZAC [Suspect]
     Indication: DEPRESSION
     Dosage: DOSAGE FORM: TABLET
     Dates: end: 20120603
  14. ATARAX [Suspect]
     Indication: RASH
     Dates: start: 20111128, end: 20111211
  15. ATARAX [Suspect]
     Indication: ANTIALLERGIC THERAPY
  16. AMLOR [Suspect]
     Indication: HYPERTENSION
     Dosage: 5 MG, UNK
     Dates: start: 200902, end: 20111122
  17. AMLOR [Suspect]
     Dosage: 5 MG, QOD
  18. MIANSERIN [Suspect]
     Indication: PRODUCT USED FOR UNKNOWN INDICATION
     Dosage: DOSAGE FORM: UNSPECIFIED
     Route: 065
     Dates: start: 20120603
  19. MIANSERIN [Suspect]
     Indication: DEPRESSION
  20. STILNOX [Suspect]
     Indication: INSOMNIA
     Dosage: DOSAGE FORM: UNSPECIFIED
     Route: 065
  21. NEORECORMON [Suspect]
     Indication: ANAEMIA
     Dosage: UNK
     Dates: start: 20111005
  22. NEORECORMON [Suspect]
     Indication: HEPATITIS C
     Dosage: 30000 IU, QW
     Dates: start: 20111012
  23. LEVOTHYROX [Concomitant]
     Indication: THYROID DISORDER
     Dosage: FOR SEVERAL YEARS
  24. LEVOTHYROX [Concomitant]
     Dosage: 75 ?G, QD
  25. HYDROCORTISONE [Concomitant]
     Indication: HYPOPITUITARISM
     Dosage: 20 MG, QD
  26. HYDROCORTISONE [Concomitant]
     Dosage: DOSAGE FORM: TABLET
  27. OROKEN [Concomitant]
     Indication: URINARY TRACT INFECTION
     Dosage: DOSAGE FORM: TABLET
     Dates: start: 20111031, end: 20111107
  28. CLAMOXYL [Concomitant]
     Indication: URINARY TRACT INFECTION
     Dosage: 1 G, BID
     Dates: start: 20111122, end: 20111128
  29. NORFLOXACIN [Concomitant]
     Indication: ANTIBIOTIC THERAPY
     Dates: start: 2011, end: 20111025
  30. AUGMENTIN [Concomitant]
     Indication: URINARY TRACT INFECTION
     Dosage: DOSAGE FORM: UNSPECIFIED
     Route: 065

REACTIONS (12)
  - Renal failure acute [Recovered/Resolved]
  - Hallucination, visual [Recovered/Resolved]
  - Renal failure [Unknown]
  - Confusional state [Recovered/Resolved]
  - Haemolytic anaemia [Recovered/Resolved]
  - General physical health deterioration [Recovered/Resolved]
  - Rash [Recovered/Resolved]
  - Anaemia [Recovered/Resolved]
  - Drug administration error [Recovered/Resolved]
  - Decreased appetite [Unknown]
  - Depression [Unknown]
  - Treatment noncompliance [Unknown]
